FAERS Safety Report 13318254 (Version 1)
Quarter: 2017Q1

REPORT INFORMATION
  Report Type: Spontaneous
  Country: US (occurrence: US)
  Receive Date: 20170310
  Receipt Date: 20170310
  Transmission Date: 20170428
  Serious: Yes (Other)
  Sender: FDA-Public Use
  Company Number: US-AMGEN-USASP2017032958

PATIENT
  Sex: Female

DRUGS (11)
  1. ENBREL [Suspect]
     Active Substance: ETANERCEPT
     Indication: RHEUMATOID ARTHRITIS
     Dosage: 50 MG, QWK
     Route: 065
     Dates: start: 199711
  2. FLEXERIL [Concomitant]
     Active Substance: CYCLOBENZAPRINE HYDROCHLORIDE
     Dosage: UNK
  3. SIMVASTATIN. [Concomitant]
     Active Substance: SIMVASTATIN
     Indication: BLOOD CHOLESTEROL ABNORMAL
     Dosage: UNK
  4. NYSTAN [Concomitant]
     Active Substance: NYSTATIN
     Dosage: UNK
  5. NITROSTAT [Concomitant]
     Active Substance: NITROGLYCERIN
     Dosage: UNK UNK, AS NECESSARY
  6. RELAFEN [Concomitant]
     Active Substance: NABUMETONE
     Dosage: UNK
  7. ESTRADIOL. [Concomitant]
     Active Substance: ESTRADIOL
     Dosage: UNK
  8. LISINOPRIL. [Concomitant]
     Active Substance: LISINOPRIL
     Indication: MYOCARDIAL INFARCTION
     Dosage: UNK
     Dates: start: 1998
  9. AMITRIPTYLINE [Concomitant]
     Active Substance: AMITRIPTYLINE
     Dosage: UNK
  10. ATENOLOL. [Concomitant]
     Active Substance: ATENOLOL
     Dosage: UNK
     Dates: start: 1998
  11. NITROQUICK [Concomitant]
     Active Substance: NITROGLYCERIN
     Dosage: UNK UNK, AS NECESSARY

REACTIONS (3)
  - Rheumatoid arthritis [Not Recovered/Not Resolved]
  - Intracranial aneurysm [Unknown]
  - Myocardial infarction [Not Recovered/Not Resolved]

NARRATIVE: CASE EVENT DATE: 1998
